FAERS Safety Report 8583093-X (Version None)
Quarter: 2012Q2

REPORT INFORMATION
  Report Type: 
  Country: None (occurrence: None)
  Receive Date: 20120423
  Receipt Date: 20091221
  Transmission Date: 20120825
  Serious: Yes (Hospitalization)
  Sender: FDA-Public Use
  Company Number: PHEH2009US13135

PATIENT
  Sex: Male

DRUGS (1)
  1. EXJADE [Suspect]
     Dosage: 3000 MG/DAY, ORAL
     Route: 048
     Dates: start: 20060329, end: 20090806

REACTIONS (1)
  - SICKLE CELL ANAEMIA WITH CRISIS [None]
